FAERS Safety Report 9227565 (Version 5)
Quarter: 2014Q4

REPORT INFORMATION
  Report Type: Report from Study
  Country: US (occurrence: US)
  Receive Date: 20130412
  Receipt Date: 20141204
  Transmission Date: 20150529
  Serious: Yes (Death, Hospitalization)
  Sender: FDA-Public Use
  Company Number: US-ASTELLAS-2013US003900

PATIENT
  Age: 69 Year
  Sex: Female

DRUGS (1)
  1. ERLOTINIB [Suspect]
     Active Substance: ERLOTINIB
     Indication: NON-SMALL CELL LUNG CANCER
     Dosage: UNK UNK, ONCE DAILY
     Route: 048
     Dates: start: 20130201

REACTIONS (4)
  - Vomiting [Fatal]
  - Intestinal obstruction [Fatal]
  - Hepatomegaly [Fatal]
  - Gastrointestinal obstruction [Fatal]

NARRATIVE: CASE EVENT DATE: 20130214
